FAERS Safety Report 7035453-6 (Version None)
Quarter: 2010Q4

REPORT INFORMATION
  Report Type: 
  Country: None (occurrence: None)
  Receive Date: 20101008
  Receipt Date: 20100927
  Transmission Date: 20110411
  Serious: Yes (Other)
  Sender: FDA-Public Use
  Company Number: SE-PFIZER INC-2010122097

PATIENT
  Age: 55 Year
  Sex: Female

DRUGS (4)
  1. LYRICA [Suspect]
     Indication: ANXIETY
     Dosage: 25 MG, 1X/DAY
     Dates: start: 20100921
  2. PROPAVAN [Concomitant]
     Dosage: UNK
  3. THERALEN [Concomitant]
     Dosage: UNK
  4. SOBRIL [Concomitant]
     Dosage: UNK

REACTIONS (5)
  - ANXIETY [None]
  - FATIGUE [None]
  - FEELING ABNORMAL [None]
  - GINGIVAL BLEEDING [None]
  - NEGATIVE THOUGHTS [None]
